FAERS Safety Report 18204852 (Version 2)
Quarter: 2020Q4

REPORT INFORMATION
  Report Type: Spontaneous
  Country: JP (occurrence: JP)
  Receive Date: 20200827
  Receipt Date: 20201023
  Transmission Date: 20210113
  Serious: Yes (Hospitalization, Other)
  Sender: FDA-Public Use
  Company Number: JP-BRISTOL-MYERS SQUIBB COMPANY-BMS-2020-069711

PATIENT
  Age: 66 Year
  Sex: Male
  Weight: 48.7 kg

DRUGS (4)
  1. MIYA-BM [Concomitant]
     Active Substance: CLOSTRIDIUM BUTYRICUM SPORES STRAIN M-55
     Indication: PROPHYLAXIS
     Dosage: 1 GRAM, Q8H
     Route: 048
     Dates: start: 202004
  2. OPDIVO [Suspect]
     Active Substance: NIVOLUMAB
     Indication: OESOPHAGEAL CARCINOMA
     Dosage: 240 MILLIGRAM
     Route: 041
     Dates: start: 20200714, end: 20200812
  3. TWINLINE [Concomitant]
     Active Substance: DIETARY SUPPLEMENT
     Indication: OESOPHAGEAL CARCINOMA
     Dosage: 400 MILLILITER, Q12H (FORMULATION-SOLUTION (EXCEPT SYRUP))
     Route: 065
     Dates: start: 202004
  4. TAKECAB [Concomitant]
     Active Substance: VONOPRAZAN FUMARATE
     Indication: OESOPHAGEAL CARCINOMA
     Dosage: 10 MILLIGRAM, QD
     Route: 048
     Dates: start: 202001

REACTIONS (1)
  - Hepatitis [Recovering/Resolving]

NARRATIVE: CASE EVENT DATE: 20200812
